FAERS Safety Report 9533661 (Version 2)
Quarter: 2017Q4

REPORT INFORMATION
  Report Type: Spontaneous
  Country: CA (occurrence: CA)
  Receive Date: 20130918
  Receipt Date: 20171218
  Transmission Date: 20180321
  Serious: Yes (Hospitalization, Disabling, Other)
  Sender: FDA-Public Use
  Company Number: CA-009507513-1309CAN008170

PATIENT
  Age: 37 Year
  Sex: Female

DRUGS (3)
  1. VICTRELIS [Suspect]
     Active Substance: BOCEPREVIR
     Indication: HEPATITIS C
     Dosage: BOCEPREVIR FOR HEPATITIS C TREATMENT FOR 3 MONTHS
     Route: 065
     Dates: start: 20120922
  2. CITALOPRAM [Concomitant]
     Active Substance: CITALOPRAM HYDROBROMIDE
     Indication: DEPRESSION
     Route: 048
  3. PEGINTERFERON ALFA-2B (+) RIBAVIRIN [Concomitant]
     Active Substance: PEGINTERFERON ALFA-2B\RIBAVIRIN
     Indication: PRODUCT USED FOR UNKNOWN INDICATION
     Dosage: UNK
     Route: 065
     Dates: start: 20120824

REACTIONS (8)
  - Aggression [Recovering/Resolving]
  - Catatonia [Recovering/Resolving]
  - Condition aggravated [Recovering/Resolving]
  - Paranoia [Recovering/Resolving]
  - Anxiety [Recovering/Resolving]
  - Hallucinations, mixed [Recovering/Resolving]
  - Speech disorder [Recovering/Resolving]
  - Sleep disorder [Recovering/Resolving]

NARRATIVE: CASE EVENT DATE: 20121205
